FAERS Safety Report 6083564-4 (Version None)
Quarter: 2009Q1

REPORT INFORMATION
  Report Type: 
  Country: None (occurrence: None)
  Receive Date: 20090219
  Receipt Date: 20090217
  Transmission Date: 20090719
  Serious: Yes (Hospitalization)
  Sender: FDA-Public Use
  Company Number: FR-BRISTOL-MYERS SQUIBB COMPANY-14509970

PATIENT
  Age: 70 Year
  Sex: Female

DRUGS (5)
  1. APROVEL TABS 150 MG [Suspect]
     Indication: HYPERTENSION
     Route: 048
     Dates: start: 20080401, end: 20090126
  2. VITAMIN B COMPLEX CAP [Concomitant]
     Indication: VITAMIN SUPPLEMENTATION
     Dosage: BAYER FORM
     Route: 048
     Dates: start: 20081201, end: 20090126
  3. NOVOLOG MIX 70/30 [Concomitant]
     Dosage: NOVOMIX 30
  4. SERESTA [Concomitant]
     Indication: ANXIETY
     Dosage: TAKEN 1 TABLET DAILY
     Route: 048
     Dates: start: 20081201, end: 20090126
  5. NICARDIPINE HCL [Concomitant]
     Indication: HYPERTENSION
     Dosage: 1 DF: 1 CAPS TWICE A DAY STRENGTH: 50MG
     Route: 048
     Dates: start: 20081201

REACTIONS (2)
  - HYPERKALAEMIA [None]
  - HYPONATRAEMIA [None]
